FAERS Safety Report 9688576 (Version 2)
Quarter: 2014Q1

REPORT INFORMATION
  Report Type: Spontaneous
  Country: US (occurrence: US)
  Receive Date: 20131114
  Receipt Date: 20140121
  Transmission Date: 20141002
  Serious: No
  Sender: FDA-Public Use
  Company Number: US-PFIZER INC-2013325645

PATIENT
  Age: 65 Year
  Sex: Female

DRUGS (1)
  1. LYRICA [Suspect]
     Dosage: UNK

REACTIONS (10)
  - Dry mouth [Unknown]
  - Alopecia [Unknown]
  - Insomnia [Unknown]
  - Micturition disorder [Unknown]
  - Anxiety [Recovered/Resolved with Sequelae]
  - Muscle spasms [Unknown]
  - Nervousness [Unknown]
  - Aggression [Unknown]
  - Feeling abnormal [Unknown]
  - Tremor [Unknown]
